FAERS Safety Report 13060168 (Version 1)
Quarter: 2016Q4

REPORT INFORMATION
  Report Type: Spontaneous
  Country: US (occurrence: US)
  Receive Date: 20161223
  Receipt Date: 20161223
  Transmission Date: 20170207
  Serious: Yes (Other)
  Sender: FDA-Public Use
  Company Number: US-GLAXOSMITHKLINE-US2016190683

PATIENT
  Age: 77 Year
  Sex: Male

DRUGS (2)
  1. ADVAIR DISKUS [Suspect]
     Active Substance: FLUTICASONE PROPIONATE\SALMETEROL XINAFOATE
     Indication: CHRONIC OBSTRUCTIVE PULMONARY DISEASE
     Route: 055
  2. PROAIR HFA [Concomitant]
     Active Substance: ALBUTEROL SULFATE

REACTIONS (6)
  - Lung neoplasm malignant [Not Recovered/Not Resolved]
  - Oesophageal carcinoma [Not Recovered/Not Resolved]
  - Device use error [Unknown]
  - Circumstance or information capable of leading to medication error [Unknown]
  - Overdose [Unknown]
  - Product label confusion [Unknown]

NARRATIVE: CASE EVENT DATE: 201609
